FAERS Safety Report 13561210 (Version 2)
Quarter: 2017Q2

REPORT INFORMATION
  Report Type: Spontaneous
  Country: CO (occurrence: CO)
  Receive Date: 20170518
  Receipt Date: 20170614
  Transmission Date: 20170830
  Serious: Yes (Hospitalization)
  Sender: FDA-Public Use
  Company Number: CO-009507513-1705COL007042

PATIENT
  Age: 18 Year
  Sex: Female
  Weight: 48 kg

DRUGS (3)
  1. NUVARING [Suspect]
     Active Substance: ETHINYL ESTRADIOL\ETONOGESTREL
     Dosage: 1 DF, UNK
     Route: 067
     Dates: start: 201704, end: 20170508
  2. NUVARING [Suspect]
     Active Substance: ETHINYL ESTRADIOL\ETONOGESTREL
     Dosage: UNK
     Dates: start: 2017
  3. NUVARING [Suspect]
     Active Substance: ETHINYL ESTRADIOL\ETONOGESTREL
     Indication: CONTRACEPTION
     Dosage: 1 DF, UNK
     Route: 067
     Dates: start: 20170318, end: 201704

REACTIONS (5)
  - Haematuria [Recovered/Resolved]
  - Menorrhagia [Recovering/Resolving]
  - Abdominal pain [Recovering/Resolving]
  - Prothrombin time abnormal [Recovering/Resolving]
  - Blood thromboplastin abnormal [Recovering/Resolving]

NARRATIVE: CASE EVENT DATE: 20170507
